FAERS Safety Report 25454143 (Version 1)
Quarter: 2025Q2

REPORT INFORMATION
  Report Type: Report from Study
  Country: US (occurrence: US)
  Receive Date: 20250619
  Receipt Date: 20250619
  Transmission Date: 20250717
  Serious: No
  Sender: ACADIA PHARMACEUTICALS
  Company Number: US-ACADIA PHARMACEUTICALS INC.-ACA-2025-PIM-007221

PATIENT
  Age: 52 Year
  Sex: Female

DRUGS (18)
  1. NUPLAZID [Suspect]
     Active Substance: PIMAVANSERIN TARTRATE
     Indication: Parkinson^s disease
     Dosage: 34 MILLIGRAM, QD
     Route: 048
     Dates: start: 20240529
  2. NUPLAZID [Suspect]
     Active Substance: PIMAVANSERIN TARTRATE
     Indication: Psychotic disorder
  3. CARBIDOPA AND LEVODOPA [Concomitant]
     Active Substance: CARBIDOPA\LEVODOPA
     Dates: end: 20250423
  4. PRAMIPEXOLE [Concomitant]
     Active Substance: PRAMIPEXOLE
     Dates: end: 20250423
  5. TRAMADOL HCL [Concomitant]
     Active Substance: TRAMADOL HYDROCHLORIDE
     Dates: end: 20250423
  6. CLONAZEPAM [Concomitant]
     Active Substance: CLONAZEPAM
  7. CITALOPRAM [Concomitant]
     Active Substance: CITALOPRAM
     Dates: end: 20250423
  8. VENLAFAXINE [Concomitant]
     Active Substance: VENLAFAXINE HYDROCHLORIDE
     Dates: end: 20250423
  9. ENTACAPONE [Concomitant]
     Active Substance: ENTACAPONE
  10. GOCOVRI [Concomitant]
     Active Substance: AMANTADINE
     Dates: end: 20250423
  11. RYTARY [Concomitant]
     Active Substance: CARBIDOPA\LEVODOPA
  12. QUETIAPINE FUMARATE [Concomitant]
     Active Substance: QUETIAPINE FUMARATE
     Dates: end: 20250530
  13. NITROFURANTOIN MONOHYDRATE [Concomitant]
     Active Substance: NITROFURANTOIN MONOHYDRATE
  14. METOPROLOL [Concomitant]
     Active Substance: METOPROLOL
  15. LORAZEPAM [Concomitant]
     Active Substance: LORAZEPAM
  16. MIRTAZAPINE [Concomitant]
     Active Substance: MIRTAZAPINE
  17. OMEPRAZOLE [Concomitant]
     Active Substance: OMEPRAZOLE
  18. APOKYN [Concomitant]
     Active Substance: APOMORPHINE HYDROCHLORIDE

REACTIONS (1)
  - Fall [Unknown]

NARRATIVE: CASE EVENT DATE: 20250601
